FAERS Safety Report 7236618-0 (Version None)
Quarter: 2011Q1

REPORT INFORMATION
  Report Type: 
  Country: None (occurrence: None)
  Receive Date: 20110120
  Receipt Date: 20110117
  Transmission Date: 20110831
  Serious: Yes (Hospitalization)
  Sender: FDA-Public Use
  Company Number: US-ELI_LILLY_AND_COMPANY-US201101004273

PATIENT
  Sex: Female

DRUGS (4)
  1. HUMALOG [Suspect]
     Dosage: 11 U, EACH EVENING
     Dates: start: 20100701
  2. LANTUS [Concomitant]
     Dosage: UNK, EACH EVENING
  3. HUMALOG [Suspect]
     Dosage: 9 U, OTHER
     Dates: start: 20100701
  4. HUMALOG [Suspect]
     Indication: DIABETES MELLITUS
     Dosage: 6 U, EACH MORNING
     Dates: start: 20100701

REACTIONS (5)
  - HEPATIC LESION [None]
  - CHOLECYSTECTOMY [None]
  - LIVER DISORDER [None]
  - INCORRECT STORAGE OF DRUG [None]
  - EXTRAVASATION [None]
